FAERS Safety Report 7229838-2 (Version None)
Quarter: 2011Q1

REPORT INFORMATION
  Report Type: 
  Country: None (occurrence: None)
  Receive Date: 20110117
  Receipt Date: 20110107
  Transmission Date: 20110831
  Serious: Yes (Other)
  Sender: FDA-Public Use
  Company Number: US-JNJCH-2011001029

PATIENT
  Age: 64 Year
  Sex: Male
  Weight: 81.6 kg

DRUGS (1)
  1. LISTERINE WHITENING PRE-BRUSH RINSE [Suspect]
     Indication: DENTAL CARE
     Dosage: TEXT:THREE TEASPOON TWO TIMES PER DAY
     Route: 048
     Dates: start: 20110103, end: 20110106

REACTIONS (3)
  - APPLICATION SITE BURN [None]
  - ORAL MUCOSAL EXFOLIATION [None]
  - ORAL DISCOMFORT [None]
